FAERS Safety Report 4698556-7 (Version None)
Quarter: 2005Q2

REPORT INFORMATION
  Report Type: 
  Country: None (occurrence: None)
  Receive Date: 20050622
  Receipt Date: 20050610
  Transmission Date: 20051028
  Serious: Yes (Hospitalization)
  Sender: FDA-Public Use
  Company Number: MK200506-0130-1

PATIENT
  Age: 18 Month
  Sex: Male

DRUGS (1)
  1. OPTIRAY 350 [Suspect]
     Indication: CATHETERISATION CARDIAC
     Dosage: 7 CC/KG, ONE TIME, IA
     Route: 013

REACTIONS (12)
  - BRAIN OEDEMA [None]
  - CARDIAC PROCEDURE COMPLICATION [None]
  - CLONUS [None]
  - ELECTROENCEPHALOGRAM ABNORMAL [None]
  - HAEMATOCRIT DECREASED [None]
  - HYPERREFLEXIA [None]
  - HYPOKINESIA [None]
  - IRRITABILITY [None]
  - LETHARGY [None]
  - PROCEDURAL COMPLICATION [None]
  - SIMPLE PARTIAL SEIZURES [None]
  - SOMNOLENCE [None]
